FAERS Safety Report 24774351 (Version 1)
Quarter: 2024Q4

REPORT INFORMATION
  Report Type: Spontaneous
  Country: CN (occurrence: CN)
  Receive Date: 20241225
  Receipt Date: 20241225
  Transmission Date: 20250114
  Serious: Yes (Other)
  Sender: BEIGENE
  Company Number: CN-BEIGENE-BGN-2024-020503

PATIENT

DRUGS (6)
  1. TISLELIZUMAB [Suspect]
     Active Substance: TISLELIZUMAB
     Indication: Lung neoplasm malignant
     Dosage: 200 MILLIGRAM, Q3WK
     Route: 041
     Dates: start: 20230629
  2. TISLELIZUMAB [Suspect]
     Active Substance: TISLELIZUMAB
     Indication: Metastases to central nervous system
  3. BEVACIZUMAB [Suspect]
     Active Substance: BEVACIZUMAB
     Indication: Lung neoplasm malignant
     Dosage: 400 MILLIGRAM, Q3WK
     Route: 041
     Dates: start: 20230629
  4. BEVACIZUMAB [Suspect]
     Active Substance: BEVACIZUMAB
     Indication: Metastases to central nervous system
  5. PEMETREXED [Concomitant]
     Active Substance: PEMETREXED
     Indication: Lung neoplasm malignant
     Dosage: 700 MILLIGRAM, Q3WK D1
     Route: 041
     Dates: start: 20230629
  6. PEMETREXED [Concomitant]
     Active Substance: PEMETREXED
     Indication: Metastases to central nervous system

REACTIONS (7)
  - Hepatic failure [Unknown]
  - Bradyphrenia [Not Recovered/Not Resolved]
  - Headache [Unknown]
  - Decreased appetite [Unknown]
  - Asthenia [Unknown]
  - Dyschezia [Unknown]
  - Cognitive disorder [Unknown]

NARRATIVE: CASE EVENT DATE: 20241117
